FAERS Safety Report 5915479-3 (Version None)
Quarter: 2008Q4

REPORT INFORMATION
  Report Type: 
  Country: None (occurrence: None)
  Receive Date: 20081010
  Receipt Date: 20081001
  Transmission Date: 20090506
  Serious: Yes (Other)
  Sender: FDA-Public Use
  Company Number: US-CELGENEUS-163-20785-06080814

PATIENT
  Sex: Male
  Weight: 80.4 kg

DRUGS (8)
  1. THALOMID [Suspect]
     Indication: SARCOMA
     Route: 048
     Dates: start: 20060718, end: 20060807
  2. MESNA [Suspect]
     Indication: SARCOMA
     Dosage: 2500 MG/M2/DAY CIV X 4 DAYS, (DAYS 1-4,22-25,43-46)
     Dates: start: 20060718, end: 20060721
  3. DOXORUBICIN HCL [Suspect]
     Indication: SARCOMA
     Dosage: 20 MG/M2/DAY CIV X 3 DAYS, (DAYS 1-3,22-24,43-45)
     Route: 051
     Dates: start: 20060718, end: 20060720
  4. IFOSFAMIDE [Suspect]
     Indication: SARCOMA
     Dosage: 2500 MG/M2/DAY CIV X 3 DAYS, (DAYS 1-3,22-24,43-45)
     Route: 051
     Dates: start: 20060718, end: 20060720
  5. DACARBAZINE [Suspect]
     Indication: SARCOMA
     Dosage: 225 MG/M2/DAY CIV X 3 DAYS, (DAYS 1-3,22-24,43-45)
     Route: 051
     Dates: start: 20060718, end: 20060721
  6. NEUPOGEN [Suspect]
     Indication: SARCOMA
     Dosage: 5 MCG/KG/DAY QD STARTING DAY 5 AND CONTINUING UNTIL ANC } 10,000
     Route: 058
     Dates: start: 20060718, end: 20060724
  7. EBRT [Suspect]
     Indication: SARCOMA
     Dosage: 22 GY IN 11 FRACTIONS OVER 15 DAYS, DAYS 7-21,28-42
     Dates: start: 20060718
  8. NEULASTA [Concomitant]
     Indication: DRUG USE FOR UNKNOWN INDICATION
     Route: 065
     Dates: start: 20060724

REACTIONS (12)
  - ANOREXIA [None]
  - ARTHRITIS INFECTIVE [None]
  - FATIGUE [None]
  - HAEMOGLOBIN ABNORMAL [None]
  - HYPOCALCAEMIA [None]
  - HYPOKALAEMIA [None]
  - HYPONATRAEMIA [None]
  - LYMPHOPENIA [None]
  - NEUTROPHIL COUNT ABNORMAL [None]
  - PLATELET COUNT DECREASED [None]
  - RADIATION SKIN INJURY [None]
  - WHITE BLOOD CELL COUNT DECREASED [None]
